FAERS Safety Report 11406278 (Version 1)
Quarter: 2015Q3

REPORT INFORMATION
  Report Type: Spontaneous
  Country: DK (occurrence: DK)
  Receive Date: 20150821
  Receipt Date: 20150821
  Transmission Date: 20151125
  Serious: Yes (Hospitalization, Other)
  Sender: FDA-Public Use
  Company Number: DK-PFIZER INC-2014212929

PATIENT
  Age: 47 Year
  Sex: Male
  Weight: 83 kg

DRUGS (4)
  1. VIAGRA [Suspect]
     Active Substance: SILDENAFIL CITRATE
     Indication: ERECTILE DYSFUNCTION
     Dosage: 50 MG, MONTHLY
     Route: 048
  2. BRICANYL [Concomitant]
     Active Substance: TERBUTALINE SULFATE
     Indication: ASTHMA
     Dosage: UNK
     Dates: start: 20040901
  3. VIAGRA [Suspect]
     Active Substance: SILDENAFIL CITRATE
     Dosage: DOSE: 50 MG DAILY FOR 3 DAYS. STRENGHT: 50 MG
     Route: 048
     Dates: start: 20140429, end: 20140501
  4. PULMICORT TURBUHALER [Concomitant]
     Active Substance: BUDESONIDE
     Indication: ASTHMA
     Dosage: UNK
     Dates: start: 20040901

REACTIONS (5)
  - Ocular hyperaemia [Recovered/Resolved]
  - Hypercholesterolaemia [Unknown]
  - Transient ischaemic attack [Recovered/Resolved with Sequelae]
  - Aphasia [Unknown]
  - Flushing [Recovered/Resolved]

NARRATIVE: CASE EVENT DATE: 20140501
